FAERS Safety Report 23824758 (Version 3)
Quarter: 2024Q2

REPORT INFORMATION
  Report Type: Other
  Country: GB (occurrence: GB)
  Receive Date: 20240507
  Receipt Date: 20240522
  Transmission Date: 20240715
  Serious: Yes (Other)
  Sender: FDA-Public Use
  Company Number: GB-MACLEODS PHARMA-MAC2024047119

PATIENT
  Age: 33 Year
  Sex: Female

DRUGS (3)
  1. EMTRICITABINE\TENOFOVIR DISOPROXIL [Suspect]
     Active Substance: EMTRICITABINE\TENOFOVIR DISOPROXIL
     Indication: HIV infection
     Dosage: 1 COURSE OF TABS/CAP, PRIOR TO CONCEPTION AND EXPOSURE DURING FIRST TRIMESTER
     Route: 048
     Dates: start: 20230919
  2. DARUNAVIR [Suspect]
     Active Substance: DARUNAVIR
     Indication: HIV infection
     Dosage: 1 COURSE , PRIOR TO CONCEPTION AND EXPOSURE DURING FIRST TRIMESTER DARUNAVIR GENERIC
     Route: 048
     Dates: start: 20230919
  3. NORVIR [Suspect]
     Active Substance: RITONAVIR
     Indication: HIV infection
     Route: 048
     Dates: start: 20230919

REACTIONS (4)
  - Abortion induced [Recovered/Resolved]
  - Ectopic pregnancy [Recovered/Resolved]
  - Maternal exposure during pregnancy [Recovered/Resolved]
  - Abortion of ectopic pregnancy [Recovered/Resolved]

NARRATIVE: CASE EVENT DATE: 20240115
